FAERS Safety Report 16396740 (Version 1)
Quarter: 2019Q2

REPORT INFORMATION
  Report Type: Spontaneous
  Country: SE (occurrence: SE)
  Receive Date: 20190606
  Receipt Date: 20190606
  Transmission Date: 20190711
  Serious: Yes (Other)
  Sender: FDA-Public Use
  Company Number: SE-TEVA-2019-SE-1060261

PATIENT
  Age: 32 Year
  Sex: Male

DRUGS (1)
  1. OXASCAND [Suspect]
     Active Substance: OXAZEPAM
     Route: 065
     Dates: end: 20181117

REACTIONS (8)
  - Anxiety [Unknown]
  - Hypertension [Unknown]
  - Hallucination [Unknown]
  - Delusion [Unknown]
  - Hypoaesthesia [Unknown]
  - Confusional state [Unknown]
  - Dizziness [Unknown]
  - Withdrawal syndrome [Recovering/Resolving]

NARRATIVE: CASE EVENT DATE: 20181117
